FAERS Safety Report 5033484-9 (Version None)
Quarter: 2006Q2

REPORT INFORMATION
  Report Type: 
  Country: None (occurrence: None)
  Receive Date: 20060621
  Receipt Date: 20060612
  Transmission Date: 20061013
  Serious: Yes (Other)
  Sender: FDA-Public Use
  Company Number: 2006-06-1030

PATIENT
  Sex: Female

DRUGS (2)
  1. RIBAVIRIN [Suspect]
     Indication: HEPATITIS C
     Dosage: ORAL
     Route: 048
     Dates: start: 20060101
  2. PEGASYS [Suspect]
     Indication: HEPATITIS C
     Dates: start: 20060101

REACTIONS (4)
  - DEPRESSION [None]
  - PSYCHOTIC DISORDER [None]
  - SCHIZOPHRENIFORM DISORDER [None]
  - THINKING ABNORMAL [None]
